FAERS Safety Report 26147095 (Version 1)
Quarter: 2025Q4

REPORT INFORMATION
  Report Type: Spontaneous
  Country: US (occurrence: US)
  Receive Date: 20251211
  Receipt Date: 20251211
  Transmission Date: 20260118
  Serious: No
  Sender: PFIZER
  Company Number: US-PFIZER INC-202500027762

PATIENT
  Age: 16 Year
  Sex: Male

DRUGS (1)
  1. LITFULO [Suspect]
     Active Substance: RITLECITINIB TOSYLATE
     Indication: Alopecia areata
     Dosage: 1 DF, DAILY
     Dates: start: 202502

REACTIONS (3)
  - Alopecia [Unknown]
  - Condition aggravated [Unknown]
  - Drug ineffective [Unknown]
